FAERS Safety Report 4867798-X (Version None)
Quarter: 2005Q4

REPORT INFORMATION
  Report Type: 
  Country: None (occurrence: None)
  Receive Date: 20051223
  Receipt Date: 20051223
  Transmission Date: 20060501
  Serious: Yes (Hospitalization)
  Sender: FDA-Public Use
  Company Number: None

PATIENT
  Sex: Female
  Weight: 60.8 kg

DRUGS (8)
  1. DAUNOMYCIN [Suspect]
     Indication: ACUTE LYMPHOCYTIC LEUKAEMIA
     Dosage: SEE IMAGE
     Route: 042
     Dates: start: 20051122
  2. VINCRISTINE SULFATE [Suspect]
     Dosage: SEE IMAGE
     Route: 042
     Dates: start: 20051213
  3. PREDNISONE [Suspect]
     Dosage: SEE IMAGE
     Route: 048
     Dates: start: 20051213
  4. ELSPAR [Suspect]
     Dosage: SEE IMAGE
     Route: 042
     Dates: start: 20051213
  5. METHOTREXATE [Suspect]
     Dosage: SEE IMAGE
     Route: 037
  6. ACYCLOVIR [Concomitant]
  7. DECADRON [Concomitant]
  8. FENTANYL [Concomitant]

REACTIONS (4)
  - CEREBRAL HAEMORRHAGE [None]
  - HEADACHE [None]
  - NERVOUS SYSTEM DISORDER [None]
  - VENOUS THROMBOSIS [None]
